FAERS Safety Report 5336465-0 (Version None)
Quarter: 2007Q2

REPORT INFORMATION
  Report Type: 
  Country: None (occurrence: None)
  Receive Date: 20070524
  Receipt Date: 20070508
  Transmission Date: 20071010
  Serious: Yes (Death)
  Sender: FDA-Public Use
  Company Number: 2007JP001925

PATIENT
  Age: 29 Year
  Sex: Female

DRUGS (3)
  1. FUNGUARD(MICAFUNGIN) INJECTION [Suspect]
     Indication: CANDIDIASIS
     Dosage: SEE IMAGE
     Route: 041
     Dates: start: 20070409, end: 20070417
  2. FUNGUARD(MICAFUNGIN) INJECTION [Suspect]
     Indication: CANDIDIASIS
     Dosage: SEE IMAGE
     Route: 041
     Dates: start: 20070418
  3. TARGOCID [Suspect]
     Dosage: 400 MG, /D, IV DRIP
     Route: 041
     Dates: start: 20070406

REACTIONS (6)
  - BLOOD ALKALINE PHOSPHATASE INCREASED [None]
  - CONDITION AGGRAVATED [None]
  - HEPATIC FUNCTION ABNORMAL [None]
  - INFECTION [None]
  - MITOCHONDRIAL ENCEPHALOMYOPATHY [None]
  - WHITE BLOOD CELL COUNT INCREASED [None]
